FAERS Safety Report 4292480-X (Version None)
Quarter: 2004Q1

REPORT INFORMATION
  Report Type: 
  Country: None (occurrence: None)
  Receive Date: 20040211
  Receipt Date: 20040204
  Transmission Date: 20041129
  Serious: Yes (Other)
  Sender: FDA-Public Use
  Company Number: PHRM2004FR00775

PATIENT
  Age: 40 Year
  Sex: Female

DRUGS (2)
  1. TRILEPTAL [Suspect]
     Indication: CONVULSION
     Dosage: 600 MG DAILY
     Route: 048
     Dates: end: 20031220
  2. NSAID'S [Suspect]
     Indication: SPONDYLITIS
     Dates: end: 20031210

REACTIONS (1)
  - NEUROPATHY PERIPHERAL [None]
